FAERS Safety Report 8141053-7 (Version None)
Quarter: 2012Q1

REPORT INFORMATION
  Report Type: 
  Country: None (occurrence: None)
  Receive Date: 20120216
  Receipt Date: 20120208
  Transmission Date: 20120608
  Serious: Yes (Hospitalization)
  Sender: FDA-Public Use
  Company Number: JP-SANOFI-AVENTIS-2011SA074285

PATIENT
  Age: 73 Year
  Sex: Male
  Weight: 72.7 kg

DRUGS (9)
  1. NEUROTROPIN [Concomitant]
     Dates: end: 20111019
  2. AZULFIDINE [Concomitant]
     Dates: end: 20111019
  3. ALLEGRA [Suspect]
     Indication: RASH
     Route: 048
     Dates: start: 20110801, end: 20111019
  4. CANDESARTAN CILEXETIL [Suspect]
     Indication: HYPERTENSION
     Route: 048
     Dates: start: 20110801, end: 20111019
  5. PRORENAL [Concomitant]
     Dates: start: 20110628, end: 20110927
  6. PREDNISOLONE [Concomitant]
     Dates: end: 20111019
  7. INDAPAMIDE [Suspect]
     Indication: HYPERTENSION
     Route: 048
     Dates: start: 20110801, end: 20111019
  8. DEPAS [Suspect]
     Indication: PALPITATIONS
     Route: 048
     Dates: start: 20110801, end: 20111019
  9. FAMOTIDINE [Concomitant]
     Dates: end: 20111019

REACTIONS (1)
  - TOXIC SKIN ERUPTION [None]
